FAERS Safety Report 21140903 (Version 1)
Quarter: 2022Q3

REPORT INFORMATION
  Report Type: Spontaneous
  Country: US (occurrence: None)
  Receive Date: 20220727
  Receipt Date: 20220727
  Transmission Date: 20221027
  Serious: No
  Sender: FDA-Public Use
  Company Number: None

PATIENT
  Age: 80 Year

DRUGS (10)
  1. ABIRATERONE [Suspect]
     Active Substance: ABIRATERONE
     Indication: Prostate cancer
     Dosage: 1000MG ONCE DAILY ORAL
     Route: 048
     Dates: start: 202010
  2. DOCUSATE [Concomitant]
     Active Substance: DOCUSATE
  3. FLUCONAZOLE [Concomitant]
     Active Substance: FLUCONAZOLE
  4. MELATONIN [Concomitant]
     Active Substance: MELATONIN
  5. POTASSIUM CHLORIDE [Concomitant]
     Active Substance: POTASSIUM CHLORIDE
  6. SIMVASTATIN [Concomitant]
     Active Substance: SIMVASTATIN
  7. SULFAMETHOXAZOLE\TRIMETHOPRIM [Concomitant]
     Active Substance: SULFAMETHOXAZOLE\TRIMETHOPRIM
  8. TAMSULOSIN [Concomitant]
     Active Substance: TAMSULOSIN
  9. VANCOMYCIN [Concomitant]
     Active Substance: VANCOMYCIN
  10. VITAMIN D3 [Concomitant]
     Active Substance: CHOLECALCIFEROL

REACTIONS (1)
  - Urinary tract infection [None]

NARRATIVE: CASE EVENT DATE: 20220721
